FAERS Safety Report 7262827-0 (Version None)
Quarter: 2011Q1

REPORT INFORMATION
  Report Type: 
  Country: None (occurrence: None)
  Receive Date: 20110130
  Receipt Date: 20100923
  Transmission Date: 20110831
  Serious: No
  Sender: FDA-Public Use
  Company Number: US-ABBOTT-10P-163-0667602-00

PATIENT
  Age: 69 Year
  Sex: Male

DRUGS (3)
  1. CINISTERIDE [Concomitant]
     Indication: PROSTATIC DISORDER
  2. HUMIRA [Suspect]
     Indication: PSORIASIS
     Dates: start: 20100801
  3. FLOMAX [Concomitant]
     Indication: PROSTATIC DISORDER
     Dosage: DAILY

REACTIONS (2)
  - INJECTION SITE HAEMORRHAGE [None]
  - DEVICE MALFUNCTION [None]
